FAERS Safety Report 6871220-1 (Version None)
Quarter: 2010Q3

REPORT INFORMATION
  Report Type: 
  Country: None (occurrence: None)
  Receive Date: 20100723
  Receipt Date: 20100712
  Transmission Date: 20110219
  Serious: Yes (Hospitalization, Other)
  Sender: FDA-Public Use
  Company Number: US-PFIZER INC-2010043744

PATIENT
  Sex: Male

DRUGS (1)
  1. CHANTIX [Suspect]
     Indication: SMOKING CESSATION THERAPY
     Dosage: UNK
     Dates: start: 20080816, end: 20080827

REACTIONS (9)
  - ACUTE PSYCHOSIS [None]
  - ANXIETY [None]
  - DELUSIONAL DISORDER, UNSPECIFIED TYPE [None]
  - HALLUCINATION, AUDITORY [None]
  - HALLUCINATION, VISUAL [None]
  - MAJOR DEPRESSION [None]
  - MENTAL DISORDER [None]
  - SCHIZOPHRENIA [None]
  - SUICIDAL IDEATION [None]
